FAERS Safety Report 15158600 (Version 1)
Quarter: 2018Q3

REPORT INFORMATION
  Report Type: Spontaneous
  Country: AU (occurrence: AU)
  Receive Date: 20180718
  Receipt Date: 20180718
  Transmission Date: 20181010
  Serious: Yes (Other)
  Sender: FDA-Public Use
  Company Number: AU-TEVA-2018-AU-924780

PATIENT
  Sex: Female

DRUGS (4)
  1. ARIPIPRAZOLE. [Suspect]
     Active Substance: ARIPIPRAZOLE
     Route: 065
  2. DULOXETINE. [Suspect]
     Active Substance: DULOXETINE
     Route: 065
  3. AMISULPRIDE [Suspect]
     Active Substance: AMISULPRIDE
     Route: 065
  4. RISPERIDONE. [Suspect]
     Active Substance: RISPERIDONE
     Route: 065

REACTIONS (12)
  - Dissociation [Unknown]
  - Gambling disorder [Unknown]
  - Sedation [Unknown]
  - Disease recurrence [Unknown]
  - Psychomotor hyperactivity [Unknown]
  - Schizoaffective disorder [Unknown]
  - Energy increased [Unknown]
  - Paranoia [Unknown]
  - Insomnia [Unknown]
  - Euphoric mood [Unknown]
  - Impulse-control disorder [Unknown]
  - Treatment noncompliance [Unknown]
